FAERS Safety Report 9363551 (Version 4)
Quarter: 2013Q4

REPORT INFORMATION
  Report Type: Spontaneous
  Country: US (occurrence: US)
  Receive Date: 20130624
  Receipt Date: 20131021
  Transmission Date: 20140711
  Serious: Yes (Hospitalization)
  Sender: FDA-Public Use
  Company Number: US-JNJFOC-20130610472

PATIENT
  Age: 37 Year
  Sex: Male
  Weight: 116.8 kg

DRUGS (5)
  1. REMICADE [Suspect]
     Indication: COLITIS ULCERATIVE
     Route: 042
     Dates: start: 2006
  2. CIALIS [Concomitant]
     Indication: ERECTILE DYSFUNCTION
     Route: 048
  3. ALBUTEROL [Concomitant]
     Indication: ASTHMA
     Route: 055
  4. PANTOPRAZOLE [Concomitant]
     Indication: GASTROOESOPHAGEAL REFLUX DISEASE
     Route: 048
  5. FERROUS SULPHATE [Concomitant]
     Indication: ANAEMIA
     Route: 048
     Dates: start: 20130128

REACTIONS (1)
  - Glioblastoma multiforme [Recovering/Resolving]
